FAERS Safety Report 21853427 (Version 3)
Quarter: 2023Q2

REPORT INFORMATION
  Report Type: Spontaneous
  Country: US (occurrence: US)
  Receive Date: 20230112
  Receipt Date: 20230607
  Transmission Date: 20230721
  Serious: No
  Sender: FDA-Public Use
  Company Number: US-SA-SAC20230110000781

PATIENT
  Age: 82 Year
  Sex: Male

DRUGS (2)
  1. DUPIXENT [Suspect]
     Active Substance: DUPILUMAB
     Indication: Dermatitis atopic
     Dosage: 600 MG, 1X
     Route: 058
     Dates: start: 202202
  2. DUPIXENT [Suspect]
     Active Substance: DUPILUMAB
     Indication: Dyshidrotic eczema
     Dosage: 300 MG, QOW
     Route: 058
     Dates: start: 2022

REACTIONS (5)
  - Blood disorder [Unknown]
  - Eczema [Unknown]
  - Urticaria [Unknown]
  - Product use in unapproved indication [Unknown]
  - Product dose omission issue [Unknown]
